FAERS Safety Report 8114709-X (Version None)
Quarter: 2012Q1

REPORT INFORMATION
  Report Type: 
  Country: None (occurrence: None)
  Receive Date: 20120202
  Receipt Date: 20120202
  Transmission Date: 20120608
  Serious: Yes (Hospitalization)
  Sender: FDA-Public Use
  Company Number: None

PATIENT
  Age: 63 Year
  Sex: Male
  Weight: 71.2 kg

DRUGS (1)
  1. PENICILLIN [Suspect]
     Indication: SELF-MEDICATION
     Dates: start: 20111209, end: 20111210

REACTIONS (2)
  - DOCUMENTED HYPERSENSITIVITY TO ADMINISTERED DRUG [None]
  - SPEECH DISORDER [None]
